FAERS Safety Report 9439095 (Version 1)
Quarter: 2013Q3

REPORT INFORMATION
  Report Type: Report from Study
  Country: CA (occurrence: CA)
  Receive Date: 20130802
  Receipt Date: 20130802
  Transmission Date: 20140515
  Serious: Yes (Hospitalization)
  Sender: FDA-Public Use
  Company Number: CA-ABBOTT-13P-028-1125668-00

PATIENT
  Age: 82 Year
  Sex: Male
  Weight: 62.65 kg

DRUGS (3)
  1. LUPRON DEPOT [Suspect]
     Indication: PROSTATE CANCER
     Route: 030
     Dates: start: 20110628
  2. FLUTAMIDE [Concomitant]
     Indication: PROSTATE CANCER
     Route: 048
     Dates: start: 20110616
  3. ZOMETA [Concomitant]
     Indication: PROSTATE CANCER
     Route: 042
     Dates: start: 20110917

REACTIONS (1)
  - Infection [Recovered/Resolved]
